FAERS Safety Report 12967641 (Version 6)
Quarter: 2017Q2

REPORT INFORMATION
  Report Type: Spontaneous
  Country: US (occurrence: US)
  Receive Date: 20161123
  Receipt Date: 20170614
  Transmission Date: 20170830
  Serious: Yes (Congenital Anomaly, Other)
  Sender: FDA-Public Use
  Company Number: PHEH2016US030518

PATIENT
  Sex: Female

DRUGS (1)
  1. ZOFRAN [Suspect]
     Active Substance: ONDANSETRON HYDROCHLORIDE
     Indication: FOETAL EXPOSURE DURING PREGNANCY
     Dosage: MOTHER^S DOSE: 04 MG, TWICE DAILY (BID)
     Route: 064

REACTIONS (12)
  - Left-to-right cardiac shunt [Unknown]
  - Rhinitis allergic [Unknown]
  - Upper respiratory tract infection [Unknown]
  - Atrial septal defect [Unknown]
  - Congenital aortic valve incompetence [Unknown]
  - Foetal exposure during pregnancy [Unknown]
  - Cardiac murmur [Unknown]
  - Injury [Unknown]
  - Ventricular septal defect [Unknown]
  - Asthma [Unknown]
  - Scoliosis [Unknown]
  - Ear pain [Unknown]
